FAERS Safety Report 9375240 (Version 8)
Quarter: 2015Q2

REPORT INFORMATION
  Report Type: Spontaneous
  Country: US (occurrence: US)
  Receive Date: 20130628
  Receipt Date: 20150403
  Transmission Date: 20150821
  Serious: Yes (Hospitalization, Other)
  Sender: FDA-Public Use
  Company Number: US-MERCK-1306USA013705

PATIENT
  Sex: Female
  Weight: 87.75 kg

DRUGS (5)
  1. JANUVIA [Suspect]
     Active Substance: SITAGLIPTIN PHOSPHATE
     Indication: TYPE 2 DIABETES MELLITUS
     Dosage: 100 MG, QD
     Route: 048
     Dates: start: 20070416, end: 20120727
  2. JANUMET [Suspect]
     Active Substance: METFORMIN HYDROCHLORIDE\SITAGLIPTIN PHOSPHATE
     Indication: TYPE 2 DIABETES MELLITUS
     Dosage: 50 MG/500 MG, QD
     Route: 048
     Dates: start: 20110121, end: 20110610
  3. JANUMET [Suspect]
     Active Substance: METFORMIN HYDROCHLORIDE\SITAGLIPTIN PHOSPHATE
     Dosage: 50 MG/1000 MG, UNK
     Route: 048
     Dates: start: 20110501, end: 20110607
  4. JANUMET [Suspect]
     Active Substance: METFORMIN HYDROCHLORIDE\SITAGLIPTIN PHOSPHATE
     Dosage: 50 MG/500 MG, BID
     Route: 048
     Dates: start: 201103
  5. VALIUM [Concomitant]
     Active Substance: DIAZEPAM
     Dosage: 10 MG, QHS
     Route: 048
     Dates: start: 20110107

REACTIONS (41)
  - Blood cholesterol increased [Unknown]
  - Gastrooesophageal reflux disease [Unknown]
  - Dyspnoea [Unknown]
  - Thyroid neoplasm [Unknown]
  - Hepatic steatosis [Unknown]
  - Gastritis [Unknown]
  - Choking sensation [Unknown]
  - Hepatomegaly [Unknown]
  - Pulmonary mass [Unknown]
  - Pancreatic carcinoma metastatic [Unknown]
  - Pancreaticoduodenectomy [Unknown]
  - Cholelithiasis [Unknown]
  - Pancreatitis acute [Recovered/Resolved]
  - Goitre [Unknown]
  - Lacrimal duct procedure [Unknown]
  - Parathyroid tumour benign [Unknown]
  - Trigeminal neuralgia [Unknown]
  - Anxiety [Unknown]
  - Dental caries [Unknown]
  - Muscle spasms [Unknown]
  - Back pain [Not Recovered/Not Resolved]
  - Catheterisation cardiac [Unknown]
  - Pain in extremity [Unknown]
  - Insomnia [Unknown]
  - Oedema peripheral [Unknown]
  - Diabetes mellitus inadequate control [Unknown]
  - Haemorrhoids [Unknown]
  - Anaemia [Not Recovered/Not Resolved]
  - Hypotension [Unknown]
  - Helicobacter infection [Unknown]
  - Blood glucose increased [Unknown]
  - Inappropriate schedule of drug administration [Unknown]
  - Metastases to lymph nodes [Unknown]
  - Depression [Unknown]
  - Renal cyst [Unknown]
  - Goitre [Unknown]
  - Migraine [Unknown]
  - Blood glucose increased [Unknown]
  - Hypertension [Unknown]
  - Diverticulum intestinal [Unknown]
  - Pneumobilia [Unknown]

NARRATIVE: CASE EVENT DATE: 20110107
